FAERS Safety Report 26107806 (Version 2)
Quarter: 2025Q4

REPORT INFORMATION
  Report Type: Report from Study
  Country: US (occurrence: US)
  Receive Date: 20251201
  Receipt Date: 20251231
  Transmission Date: 20260117
  Serious: Yes (Other)
  Sender: DR REDDYS
  Company Number: US-DRL-USA-USA/2025/11/017999

PATIENT
  Age: 21 Year
  Sex: Female

DRUGS (3)
  1. ZENATANE [Suspect]
     Active Substance: ISOTRETINOIN
     Indication: Product used for unknown indication
     Route: 065
  2. ZENATANE [Suspect]
     Active Substance: ISOTRETINOIN
     Dosage: 55111-0113-81
     Route: 065
  3. ZENATANE [Suspect]
     Active Substance: ISOTRETINOIN
     Dosage: 55111-0137-81
     Route: 065
     Dates: start: 20250407, end: 202508

REACTIONS (1)
  - Exposure during pregnancy [Unknown]
